FAERS Safety Report 5841581-0 (Version None)
Quarter: 2008Q3

REPORT INFORMATION
  Report Type: 
  Country: None (occurrence: None)
  Receive Date: 20080812
  Receipt Date: 20080729
  Transmission Date: 20090109
  Serious: Yes (Other)
  Sender: FDA-Public Use
  Company Number: US-BAYER-200813107BCC

PATIENT
  Age: 48 Year
  Sex: Female
  Weight: 70 kg

DRUGS (4)
  1. PHILLIPS MILK OF MAGNESIA CHERRY [Suspect]
     Indication: DRUG USE FOR UNKNOWN INDICATION
     Route: 048
     Dates: start: 20080729
  2. PHILLIPS MILK OF MAGNESIA CHERRY [Suspect]
     Dates: start: 20080701
  3. LAMICTAL [Concomitant]
  4. KEPPRA [Concomitant]

REACTIONS (4)
  - DIZZINESS [None]
  - FREQUENT BOWEL MOVEMENTS [None]
  - HYPERHIDROSIS [None]
  - LOSS OF CONSCIOUSNESS [None]
